FAERS Safety Report 5371504-2 (Version None)
Quarter: 2007Q2

REPORT INFORMATION
  Report Type: 
  Country: None (occurrence: None)
  Receive Date: 20070615
  Receipt Date: 20060912
  Transmission Date: 20071010
  Serious: Yes (Other)
  Sender: FDA-Public Use
  Company Number: 200617691US

PATIENT
  Sex: Female

DRUGS (6)
  1. LANTUS [Suspect]
     Indication: DIABETES MELLITUS INSULIN-DEPENDENT
     Dates: start: 20061024
  2. LANTUS [Suspect]
     Indication: DIABETES MELLITUS INSULIN-DEPENDENT
     Dosage: 50 U HS
     Dates: start: 20060901
  3. LANTUS [Suspect]
     Indication: DIABETES MELLITUS INSULIN-DEPENDENT
     Dosage: 44 U HS
     Dates: start: 20060908
  4. OPTICLIK [Suspect]
     Dates: start: 20061124
  5. OPTICLIK [Suspect]
     Dates: start: 20060908
  6. NOVOLOG [Concomitant]

REACTIONS (1)
  - HYPERGLYCAEMIA [None]
